FAERS Safety Report 20857835 (Version 3)
Quarter: 2022Q3

REPORT INFORMATION
  Report Type: Spontaneous
  Country: US (occurrence: US)
  Receive Date: 20220521
  Receipt Date: 20220829
  Transmission Date: 20221027
  Serious: Yes (Other)
  Sender: FDA-Public Use
  Company Number: US-BRISTOL-MYERS SQUIBB COMPANY-2022-031137

PATIENT
  Age: 56 Year
  Sex: Female
  Weight: 120.20 kg

DRUGS (2)
  1. REVLIMID [Suspect]
     Active Substance: LENALIDOMIDE
     Indication: Plasma cell myeloma
     Dosage: DAILY DAYS 1-28
     Route: 048
     Dates: start: 20210315
  2. REVLIMID [Suspect]
     Active Substance: LENALIDOMIDE
     Route: 048
     Dates: start: 20190315

REACTIONS (9)
  - Diabetes mellitus [Unknown]
  - Dizziness [Unknown]
  - Nausea [Recovered/Resolved with Sequelae]
  - Fatigue [Recovered/Resolved with Sequelae]
  - Decreased appetite [Recovered/Resolved with Sequelae]
  - Arthritis [Unknown]
  - Neuropathy peripheral [Unknown]
  - Pain [Unknown]
  - Hypoaesthesia [Unknown]
